FAERS Safety Report 21058771 (Version 2)
Quarter: 2022Q3

REPORT INFORMATION
  Report Type: Report from Study
  Country: NL (occurrence: NL)
  Receive Date: 20220708
  Receipt Date: 20220816
  Transmission Date: 20221026
  Serious: Yes (Death)
  Sender: FDA-Public Use
  Company Number: NL-NOVARTISPH-NVSC2022NL156116

PATIENT
  Age: 70 Year
  Sex: Female

DRUGS (11)
  1. ACLASTA [Suspect]
     Active Substance: ZOLEDRONIC ACID
     Indication: Product used for unknown indication
     Dosage: 1 DOSAGE FORM, Q12MO (1.00 X PER 52 WEKS)
     Route: 042
  2. CLOPIDOGREL [Concomitant]
     Active Substance: CLOPIDOGREL BISULFATE
     Indication: Product used for unknown indication
     Dosage: 75 MG, QD (1 X PER DAY 1 PIECE)
     Route: 048
  3. FENTANYL [Concomitant]
     Active Substance: FENTANYL
     Indication: Product used for unknown indication
     Dosage: 25 UG/HOUR (1 X PER 3 DAYS 1 PIECE)
     Route: 062
  4. FENTANYL [Concomitant]
     Active Substance: FENTANYL
     Indication: Product used for unknown indication
     Dosage: 100 UG (IF NECESSARY 1 PIECE, IN CASE OF WITH INSUFFICIENT EFFECT, REPEAT IF NECESSARY WITHIN 15-30
     Route: 060
  5. MOLAX [Concomitant]
     Indication: Product used for unknown indication
     Dosage: UNK FORMULATION:  POWDER FOR DRINK  ( IF NECESSARY 1 X PER DAY 1 PIECE)
     Route: 048
  6. GEN [Concomitant]
     Indication: Product used for unknown indication
     Dosage: UNK FORMULATION:  POWDER FOR DRINK  ( IF NECESSARY 1 X PER DAY 1 PIECE)
     Route: 048
  7. SODIUM LAURYL SULFATE [Concomitant]
     Active Substance: SODIUM LAURYL SULFATE
     Indication: Product used for unknown indication
     Dosage: 9/625MG/ML VIAL 5ML (IF NECESSARY 1 X PER DAY 1 PIECE)
     Route: 054
  8. ACETAMINOPHEN [Concomitant]
     Active Substance: ACETAMINOPHEN
     Indication: Product used for unknown indication
     Dosage: 2 DOSAGE FORM, QD
     Route: 048
  9. SPIRONOLACTONE [Concomitant]
     Active Substance: SPIRONOLACTONE
     Indication: Product used for unknown indication
     Dosage: 25 MG, QD (1 X PER DAY 1 PIECE)
     Route: 048
  10. VERAPAMIL [Concomitant]
     Active Substance: VERAPAMIL HYDROCHLORIDE
     Indication: Product used for unknown indication
     Dosage: 120 MG, QD ( 1 X PER DAY 1 PIECE)
     Route: 048
  11. FENTANYL [Concomitant]
     Active Substance: FENTANYL
     Indication: Product used for unknown indication
     Dosage: 25UG/HOUR, (1 X PER 3 DAYS 1 PIECE)
     Route: 062

REACTIONS (1)
  - Death [Fatal]

NARRATIVE: CASE EVENT DATE: 20210904
